FAERS Safety Report 7811846-1 (Version None)
Quarter: 2011Q4

REPORT INFORMATION
  Report Type: 
  Country: None (occurrence: None)
  Receive Date: 20111013
  Receipt Date: 20110822
  Transmission Date: 20120403
  Serious: No
  Sender: FDA-Public Use
  Company Number: US-NOVEN-11US003034

PATIENT
  Sex: Female
  Weight: 56.689 kg

DRUGS (6)
  1. DILTIAZEM HCL [Concomitant]
     Indication: PRINZMETAL ANGINA
     Dosage: 240 MG, QD
     Route: 048
  2. AMOXICILLIN [Concomitant]
     Indication: DENTAL CLEANING
     Dosage: UNK
     Route: 048
     Dates: start: 20110101, end: 20110101
  3. SPIRONOLACTONE [Concomitant]
     Indication: DIURETIC THERAPY
     Route: 048
  4. HYDROCODONE BITARTRATE [Concomitant]
     Indication: BREAKTHROUGH PAIN
     Dosage: UNK
     Route: 048
  5. TRAMADOL HCL [Concomitant]
     Indication: BACK PAIN
     Dosage: UNK
     Route: 048
  6. FENTANYL [Suspect]
     Indication: SPINAL CORD INJURY
     Dosage: 100 UG/HR, Q72H
     Route: 062
     Dates: start: 20110819, end: 20110820

REACTIONS (6)
  - APPLICATION SITE BURN [None]
  - APPLICATION SITE IRRITATION [None]
  - EUPHORIC MOOD [None]
  - PRODUCT QUALITY ISSUE [None]
  - APPLICATION SITE ERYTHEMA [None]
  - INADEQUATE ANALGESIA [None]
